FAERS Safety Report 9113170 (Version 2)
Quarter: 2013Q3

REPORT INFORMATION
  Report Type: Spontaneous
  Country: US (occurrence: US)
  Receive Date: 20130211
  Receipt Date: 20130925
  Transmission Date: 20140515
  Serious: Yes (Other)
  Sender: FDA-Public Use
  Company Number: US-PFIZER INC-2013054256

PATIENT
  Age: 57 Year
  Sex: Female

DRUGS (21)
  1. LYRICA [Suspect]
     Dosage: 150 MG, 2X/DAY
     Route: 048
  2. LANTUS [Concomitant]
     Dosage: 45 IU, DAILY
     Route: 058
  3. CELEXA [Concomitant]
     Dosage: 40 MG, 1X/DAY
     Route: 048
     Dates: start: 20121217, end: 20121217
  4. CELEXA [Concomitant]
     Dosage: 40 MG, 1X/DAY
     Dates: start: 20130204, end: 20130204
  5. CELEXA [Concomitant]
     Dosage: 40 MG, 1X/DAY
     Dates: start: 20130414, end: 20130414
  6. CELEXA [Concomitant]
     Dosage: 40 MG, 1X/DAY
     Dates: start: 20130725, end: 20130725
  7. HUMALOG [Concomitant]
     Dosage: DOSE: SLIDING; WHEN: SCALE
     Route: 058
     Dates: start: 20121217, end: 20121217
  8. HUMALOG [Concomitant]
     Dosage: DOSE: SLIDING; WHEN: SCALE
     Dates: start: 20130204, end: 20130204
  9. HUMALOG [Concomitant]
     Dosage: DOSE: SLIDING; WHEN: SCALE
     Dates: start: 20130414, end: 20130414
  10. HUMALOG [Concomitant]
     Dosage: DOSE: SLIDING; WHEN: SCALE
     Dates: start: 20130725, end: 20130725
  11. COZAAR [Concomitant]
     Dosage: 25 MG, 1X/DAY
     Route: 048
     Dates: start: 20121217, end: 20121217
  12. COZAAR [Concomitant]
     Dosage: 25 MG, 1X/DAY
     Dates: start: 20130204, end: 20130204
  13. COZAAR [Concomitant]
     Dosage: 25 MG, 1X/DAY
     Dates: start: 20130414, end: 20130414
  14. COZAAR [Concomitant]
     Dosage: 25 MG, 1X/DAY
     Dates: start: 20130725, end: 20130725
  15. WELLBUTRIN [Concomitant]
     Dosage: 150 MG, 2X/DAY
     Route: 048
     Dates: start: 20121217, end: 20121217
  16. WELLBUTRIN [Concomitant]
     Dosage: 150 MG, 2X/DAY
     Dates: start: 20130204, end: 20130204
  17. ULTRACET [Concomitant]
     Dosage: PARACETAMOL 325 MG/TRAMADOL HYDROCHLORIDE 37.5 MG, AS NEEDED (2 TABS EVERY 6 HRS)
     Route: 048
     Dates: start: 20121217, end: 20121217
  18. ULTRACET [Concomitant]
     Dosage: PARACETAMOL 325 MG/TRAMADOL HYDROCHLORIDE 37.5 MG, AS NEEDED (2 TABS EVERY 6 HRS)
     Dates: start: 20130204, end: 20130204
  19. TRAMADOL [Concomitant]
     Dosage: 1 DF, AS NEEDED (EVERY 3-4 HR)
     Route: 048
     Dates: start: 20121217, end: 20121217
  20. NORVASC [Concomitant]
     Dosage: 5 MG, DAILY
     Route: 048
     Dates: start: 20130725, end: 20130725
  21. AMBIEN [Concomitant]
     Dosage: 10 MG, 1X/DAY (BED TIME)
     Route: 048
     Dates: start: 20130725, end: 20130725

REACTIONS (4)
  - Abscess oral [Unknown]
  - Malaise [Unknown]
  - Oral pain [Unknown]
  - Sinusitis [Unknown]
